FAERS Safety Report 21565655 (Version 2)
Quarter: 2022Q4

REPORT INFORMATION
  Report Type: Report from Study
  Country: US (occurrence: US)
  Receive Date: 20221108
  Receipt Date: 20221202
  Transmission Date: 20230112
  Serious: Yes (Death, Hospitalization, Other)
  Sender: FDA-Public Use
  Company Number: US-GSKCCFUS-Case-01546581_AE-87527

PATIENT

DRUGS (1)
  1. MEPOLIZUMAB [Suspect]
     Active Substance: MEPOLIZUMAB
     Indication: Asthma
     Dosage: UNK

REACTIONS (7)
  - Death [Fatal]
  - Pneumonia [Unknown]
  - Respiratory distress [Recovered/Resolved]
  - Illness [Unknown]
  - Hospitalisation [Unknown]
  - Loss of consciousness [Unknown]
  - Renal disorder [Unknown]
